FAERS Safety Report 4581978-2 (Version None)
Quarter: 2005Q1

REPORT INFORMATION
  Report Type: 
  Country: None (occurrence: None)
  Receive Date: 20050119
  Receipt Date: 20040617
  Transmission Date: 20050727
  Serious: Yes (Death)
  Sender: FDA-Public Use
  Company Number: US-JNJFOC-20040604616

PATIENT
  Age: 81 Year
  Sex: Female

DRUGS (1)
  1. DOXIL [Suspect]
     Indication: LYMPHOMA
     Dosage: 55 MG, INTRAVENOUS
     Route: 042
     Dates: start: 20040130, end: 20040130

REACTIONS (1)
  - LYMPHOMA [None]
